FAERS Safety Report 6588174-8 (Version None)
Quarter: 2010Q1

REPORT INFORMATION
  Report Type: 
  Country: None (occurrence: None)
  Receive Date: 20100218
  Receipt Date: 20100209
  Transmission Date: 20100710
  Serious: Yes (Other)
  Sender: FDA-Public Use
  Company Number: CA-ASTRAZENECA-2009SE30887

PATIENT
  Age: 80 Year
  Sex: Male

DRUGS (3)
  1. CASODEX [Suspect]
     Indication: PROSTATE CANCER
     Route: 048
  2. ZOLADEX [Suspect]
     Indication: PROSTATE CANCER
     Route: 058
     Dates: start: 20090701, end: 20100101
  3. COVERSYL [Concomitant]
     Indication: HYPERTENSION

REACTIONS (8)
  - CONSTIPATION [None]
  - DYSPNOEA [None]
  - FATIGUE [None]
  - GYNAECOMASTIA [None]
  - HOT FLUSH [None]
  - HYPERTENSION [None]
  - HYPOAESTHESIA [None]
  - HYPOTONIA [None]
